FAERS Safety Report 4799246-2 (Version None)
Quarter: 2005Q4

REPORT INFORMATION
  Report Type: 
  Country: None (occurrence: None)
  Receive Date: 20051013
  Receipt Date: 20051004
  Transmission Date: 20060501
  Serious: No
  Sender: FDA-Public Use
  Company Number: DEU-2003-0000686

PATIENT
  Age: 70 Year
  Sex: Female

DRUGS (4)
  1. OXYCODONE HCL [Suspect]
     Indication: PAIN
     Dosage: 30 MG, QID, ORAL
     Route: 048
     Dates: start: 20020214, end: 20020223
  2. OXYCODONE HCL [Suspect]
     Indication: PAIN
     Dosage: 30 MG, QID, ORAL
     Route: 048
     Dates: start: 20020224, end: 20020716
  3. OXYCODONE HCL [Suspect]
     Indication: PAIN
     Dosage: 30 MG, QID, ORAL
     Route: 048
     Dates: start: 20030717
  4. SODIUM PICOSULFATE (SODIUM PICOSULFATE) [Concomitant]

REACTIONS (1)
  - ARTHRALGIA [None]
